FAERS Safety Report 8518263-X (Version None)
Quarter: 2012Q3

REPORT INFORMATION
  Report Type: 
  Country: None (occurrence: None)
  Receive Date: 20120718
  Receipt Date: 20111213
  Transmission Date: 20120928
  Serious: No
  Sender: FDA-Public Use
  Company Number: US-BRISTOL-MYERS SQUIBB COMPANY-16287195

PATIENT
  Sex: Female

DRUGS (8)
  1. SENNA PLUS [Concomitant]
  2. PRILOSEC [Concomitant]
  3. FISH OIL [Concomitant]
  4. VITAMIN D [Concomitant]
  5. WARFARIN SODIUM [Suspect]
     Dates: start: 20090101
  6. SYNTHROID [Concomitant]
  7. MAGNESIUM SULFATE [Concomitant]
  8. MULTI-VITAMIN [Concomitant]

REACTIONS (1)
  - CONSTIPATION [None]
